FAERS Safety Report 15668597 (Version 1)
Quarter: 2018Q4

REPORT INFORMATION
  Report Type: Spontaneous
  Country: DE (occurrence: DE)
  Receive Date: 20181129
  Receipt Date: 20181129
  Transmission Date: 20190205
  Serious: Yes (Death, Other)
  Sender: FDA-Public Use
  Company Number: DE-TEVA-2018-DE-978506

PATIENT
  Sex: Female

DRUGS (1)
  1. VALSARTAN-RATIOPHARM COMP. 160/12,5 MG FILMTABLETTEN [Suspect]
     Active Substance: HYDROCHLOROTHIAZIDE\VALSARTAN
     Dosage: FOR SEVERAL YEARS. 1 DF CONTAINS: 120 MG VALSARTAN AND 12,5 MG HYDROCHLOROTHIAZIDE
     Route: 048

REACTIONS (1)
  - Neoplasm malignant [Fatal]
